FAERS Safety Report 19417664 (Version 1)
Quarter: 2021Q2

REPORT INFORMATION
  Report Type: Spontaneous
  Country: US (occurrence: US)
  Receive Date: 20210615
  Receipt Date: 20210615
  Transmission Date: 20210717
  Serious: Yes (Hospitalization, Other)
  Sender: FDA-Public Use
  Company Number: None

PATIENT
  Age: 69 Year
  Sex: Female

DRUGS (3)
  1. CANDESARTAN. [Suspect]
     Active Substance: CANDESARTAN
  2. LOSARTAN?HCTZ [Suspect]
     Active Substance: HYDROCHLOROTHIAZIDE\LOSARTAN
     Indication: HYPERTENSION
     Dates: start: 20201022
  3. OLMESARTAN [Suspect]
     Active Substance: OLMESARTAN

REACTIONS (4)
  - Fatigue [None]
  - Dizziness [None]
  - Vomiting [None]
  - Dyspnoea [None]

NARRATIVE: CASE EVENT DATE: 20201022
